FAERS Safety Report 26131577 (Version 1)
Quarter: 2025Q4

REPORT INFORMATION
  Report Type: Spontaneous
  Country: US (occurrence: US)
  Receive Date: 20251208
  Receipt Date: 20251208
  Transmission Date: 20260118
  Serious: Yes (Hospitalization)
  Sender: AMGEN
  Company Number: US-AMGEN-USASP2025240364

PATIENT
  Age: 81 Year
  Sex: Female

DRUGS (3)
  1. BEVACIZUMAB [Suspect]
     Active Substance: BEVACIZUMAB
     Indication: Ovarian cancer stage IV
     Dosage: UNK
     Route: 065
  2. PACLITAXEL [Concomitant]
     Active Substance: PACLITAXEL
  3. CARBOPLATIN [Concomitant]
     Active Substance: CARBOPLATIN

REACTIONS (3)
  - Tachycardia [Unknown]
  - Hypertension [Unknown]
  - Proteinuria [Unknown]
